FAERS Safety Report 5414358-8 (Version None)
Quarter: 2007Q3

REPORT INFORMATION
  Report Type: 
  Country: None (occurrence: None)
  Receive Date: 20070713
  Receipt Date: 20070503
  Transmission Date: 20080115
  Serious: Yes (Hospitalization)
  Sender: FDA-Public Use
  Company Number: US-JNJFOC-20060806801

PATIENT
  Age: 31 Year
  Sex: Female
  Weight: 53.0709 kg

DRUGS (6)
  1. ORTHO EVRA [Suspect]
     Indication: CONTRACEPTION
     Dosage: TRANSDERMAL
     Route: 062
     Dates: start: 20020805, end: 20031218
  2. ZOLOFT [Concomitant]
  3. KEFLEX [Concomitant]
  4. VICODIN [Concomitant]
  5. BACTRIM [Concomitant]
  6. PHENAZOPYRIDINE HCL TAB [Concomitant]

REACTIONS (1)
  - DEEP VEIN THROMBOSIS [None]
